FAERS Safety Report 4882676-8 (Version None)
Quarter: 2006Q1

REPORT INFORMATION
  Report Type: 
  Country: None (occurrence: None)
  Receive Date: 20060113
  Receipt Date: 20060109
  Transmission Date: 20060701
  Serious: Yes (Hospitalization, Other)
  Sender: FDA-Public Use
  Company Number: 006377

PATIENT
  Age: 66 Year
  Sex: Male
  Weight: 90.7 kg

DRUGS (9)
  1. WARFARIN SODIUM [Suspect]
     Indication: CEREBROVASCULAR ACCIDENT PROPHYLAXIS
     Dosage: SEE IMAGE, ORAL
     Route: 048
     Dates: start: 20050801
  2. WARFARIN SODIUM [Suspect]
     Indication: CEREBROVASCULAR ACCIDENT PROPHYLAXIS
     Dosage: SEE IMAGE, ORAL
     Route: 048
     Dates: start: 20050901
  3. WARFARIN SODIUM [Suspect]
     Indication: CEREBROVASCULAR ACCIDENT PROPHYLAXIS
     Dosage: SEE IMAGE, ORAL
     Route: 048
     Dates: start: 20060105
  4. ATENOLOL [Concomitant]
  5. LIBRIUM [Concomitant]
  6. ZOCOR [Concomitant]
  7. ALTACE [Concomitant]
  8. ASPIRIN [Concomitant]
  9. CASODEX [Concomitant]

REACTIONS (5)
  - BLOOD URINE PRESENT [None]
  - CARDIAC FAILURE CONGESTIVE [None]
  - HAEMORRHAGE URINARY TRACT [None]
  - HEART RATE INCREASED [None]
  - INTERNATIONAL NORMALISED RATIO FLUCTUATION [None]
